FAERS Safety Report 8828438 (Version 3)
Quarter: 2012Q4

REPORT INFORMATION
  Report Type: 
  Country: VE (occurrence: VE)
  Receive Date: 20121005
  Receipt Date: 20121019
  Transmission Date: 20130627
  Serious: Yes (Death)
  Sender: FDA-Public Use
  Company Number: VE-ELI_LILLY_AND_COMPANY-VE201210000543

PATIENT
  Age: 76 Year
  Sex: Female

DRUGS (4)
  1. HUMALOG 25% LISPRO, 75% NPL [Suspect]
     Indication: TYPE 2 DIABETES MELLITUS
     Dosage: UNK, bid
     Route: 058
     Dates: start: 20120921
  2. HUMALOG LISPRO [Suspect]
     Indication: TYPE 2 DIABETES MELLITUS
     Dosage: UNK, qd
     Route: 058
     Dates: start: 20120921
  3. ANTIHYPERTENSIVES [Concomitant]
     Indication: HYPERTENSION
  4. LIPID MODIFYING AGENTS [Concomitant]
     Indication: HYPERLIPIDAEMIA

REACTIONS (1)
  - Myocardial infarction [Fatal]
